FAERS Safety Report 12916082 (Version 2)
Quarter: 2016Q4

REPORT INFORMATION
  Report Type: Report from Study
  Country: None (occurrence: FR)
  Receive Date: 20161104
  Receipt Date: 20161107
  Transmission Date: 20170207
  Serious: Yes (Other)
  Sender: FDA-Public Use
  Company Number: FR-ABBVIE-16P-056-1766279-00

PATIENT
  Age: 30 Year
  Sex: Male

DRUGS (1)
  1. HUMIRA [Suspect]
     Active Substance: ADALIMUMAB
     Indication: COLITIS ULCERATIVE
     Route: 058
     Dates: start: 2011

REACTIONS (3)
  - Neurilemmoma benign [Recovered/Resolved with Sequelae]
  - Paraesthesia [Not Recovered/Not Resolved]
  - Feeling hot [Unknown]

NARRATIVE: CASE EVENT DATE: 201606
